FAERS Safety Report 6126846-X (Version None)
Quarter: 2009Q1

REPORT INFORMATION
  Report Type: 
  Country: None (occurrence: None)
  Receive Date: 20090318
  Receipt Date: 20090303
  Transmission Date: 20090719
  Serious: Yes (Other)
  Sender: FDA-Public Use
  Company Number: 2009180214

PATIENT
  Age: 65 Year
  Sex: Male

DRUGS (1)
  1. FRAGMIN [Suspect]
     Dosage: 5000 IU,

REACTIONS (3)
  - BLOOD VISCOSITY INCREASED [None]
  - INCORRECT DOSE ADMINISTERED [None]
  - MALAISE [None]
